FAERS Safety Report 8464058-5 (Version None)
Quarter: 2012Q2

REPORT INFORMATION
  Report Type: 
  Country: None (occurrence: None)
  Receive Date: 20120625
  Receipt Date: 20120612
  Transmission Date: 20120825
  Serious: No
  Sender: FDA-Public Use
  Company Number: US-ASTRAZENECA-2012SE22207

PATIENT
  Age: 54 Year
  Sex: Male

DRUGS (2)
  1. SYMBICORT [Suspect]
     Dosage: TWO PUFFS TWICE DAILY
     Route: 055
  2. SYMBICORT [Suspect]
     Dosage: ONE PUFF TWICE DAILY
     Route: 055

REACTIONS (3)
  - DRUG DOSE OMISSION [None]
  - RESPIRATORY DISORDER [None]
  - INTENTIONAL DRUG MISUSE [None]
